FAERS Safety Report 7021419-9 (Version None)
Quarter: 2010Q3

REPORT INFORMATION
  Report Type: 
  Country: None (occurrence: None)
  Receive Date: 20100929
  Receipt Date: 20100917
  Transmission Date: 20110219
  Serious: Yes (Hospitalization)
  Sender: FDA-Public Use
  Company Number: US-ELI_LILLY_AND_COMPANY-US201008008931

PATIENT
  Sex: Female

DRUGS (13)
  1. FORTEO [Suspect]
     Indication: OSTEOPOROSIS
     Dosage: 20 UG, DAILY (1/D)
     Dates: end: 20100802
  2. ANTIHYPERTENSIVES [Concomitant]
  3. CYMBALTA [Concomitant]
     Dosage: 60 MG, UNK
  4. VITAMIN D [Concomitant]
  5. PERCOCET [Concomitant]
  6. AMBIEN [Concomitant]
  7. AZOR [Concomitant]
     Dosage: 5 MG, UNK
  8. SPIRONOLACTONE [Concomitant]
     Dosage: 25 MG, UNK
  9. OMEPRAZOLE [Concomitant]
     Dosage: 20 MG, UNK
  10. ASPIRIN [Concomitant]
     Dosage: 81 MG, UNK
  11. VITAMIN D [Concomitant]
  12. CLONAZEPAM [Concomitant]
     Dosage: 5 MG, 2/D
  13. LOVASTATIN [Concomitant]
     Dosage: 10 MG, UNK

REACTIONS (12)
  - ARTHROPATHY [None]
  - CYST [None]
  - DEVICE COMPONENT ISSUE [None]
  - FALL [None]
  - FLANK PAIN [None]
  - HALLUCINATION [None]
  - HYPOAESTHESIA [None]
  - ILL-DEFINED DISORDER [None]
  - LIMB DISCOMFORT [None]
  - MEMORY IMPAIRMENT [None]
  - MOVEMENT DISORDER [None]
  - SPINAL DISORDER [None]
